FAERS Safety Report 4896361-X (Version None)
Quarter: 2006Q1

REPORT INFORMATION
  Report Type: 
  Country: None (occurrence: None)
  Receive Date: 20060126
  Receipt Date: 20060111
  Transmission Date: 20060701
  Serious: Yes (Hospitalization, Other)
  Sender: FDA-Public Use
  Company Number: 200601IM000057

PATIENT
  Age: 8 Year
  Sex: Male
  Weight: 26 kg

DRUGS (4)
  1. IMMUKIN (INTERFERON GAMMA-1B) [Suspect]
     Indication: CYSTIC FIBROSIS
     Dosage: SUBCUTANEOUS
     Route: 058
     Dates: start: 20050411, end: 20050415
  2. IMMUKIN (INTERFERON GAMMA-1B) [Suspect]
     Indication: MYCOBACTERIAL INFECTION
     Dosage: SUBCUTANEOUS
     Route: 058
     Dates: start: 20050411, end: 20050415
  3. PULMOZYME [Concomitant]
  4. URSODEOXYCHOLIC ACID [Concomitant]

REACTIONS (1)
  - CYTOLYTIC HEPATITIS [None]
